FAERS Safety Report 6710445-2 (Version None)
Quarter: 2010Q2

REPORT INFORMATION
  Report Type: 
  Country: None (occurrence: None)
  Receive Date: 20100504
  Receipt Date: 20100427
  Transmission Date: 20101027
  Serious: Yes (Hospitalization)
  Sender: FDA-Public Use
  Company Number: PHHO2010CA05996

PATIENT
  Sex: Male
  Weight: 61 kg

DRUGS (1)
  1. TASIGNA [Suspect]
     Indication: CHRONIC MYELOID LEUKAEMIA
     Dosage: 400 MG, QD
     Route: 048
     Dates: start: 20091117, end: 20100418

REACTIONS (3)
  - ARTERIAL STENOSIS [None]
  - ARTERIAL STENT INSERTION [None]
  - MYOCARDIAL INFARCTION [None]
